FAERS Safety Report 16692051 (Version 3)
Quarter: 2020Q3

REPORT INFORMATION
  Report Type: Spontaneous
  Country: FR (occurrence: FR)
  Receive Date: 20190812
  Receipt Date: 20200923
  Transmission Date: 20201102
  Serious: Yes (Hospitalization)
  Sender: FDA-Public Use
  Company Number: FR-MYLANLABS-2019M1072016

PATIENT
  Age: 84 Year
  Sex: Male

DRUGS (12)
  1. LOVENOX [Concomitant]
     Active Substance: ENOXAPARIN SODIUM
     Dosage: UNK
  2. ZAMUDOL LP 100 MG, G?LULE ? LIB?RATION PROLONG?E [Suspect]
     Active Substance: TRAMADOL HYDROCHLORIDE
     Dosage: UNK
     Route: 048
     Dates: start: 200904
  3. TRAMADOL. [Suspect]
     Active Substance: TRAMADOL
     Indication: PAIN
     Dosage: 200 MILLIGRAM, QD (100 MG, BID)
     Route: 048
     Dates: start: 200904
  4. LAROXYL [Suspect]
     Active Substance: AMITRIPTYLINE HYDROCHLORIDE
     Dosage: UNK
     Route: 048
  5. RIVOTRIL [Suspect]
     Active Substance: CLONAZEPAM
     Indication: PAIN
     Dosage: UNK
     Route: 048
     Dates: start: 200904
  6. APRANAX                            /00256202/ [Suspect]
     Active Substance: NAPROXEN
     Indication: PAIN
     Dosage: UNK
     Route: 048
     Dates: start: 200904
  7. RIVOTRIL [Suspect]
     Active Substance: CLONAZEPAM
     Dosage: UNK
     Route: 048
  8. LYRICA [Suspect]
     Active Substance: PREGABALIN
     Indication: PAIN
     Dosage: 300 MG, 2X/DAY
     Route: 048
     Dates: start: 200904
  9. LYRICA [Suspect]
     Active Substance: PREGABALIN
     Dosage: 300 MG, BID
     Route: 048
     Dates: start: 200904
  10. APRANAX                            /00256202/ [Suspect]
     Active Substance: NAPROXEN
     Dosage: UNK
     Route: 048
  11. ZAMUDOL LP 100 MG, G?LULE ? LIB?RATION PROLONG?E [Suspect]
     Active Substance: TRAMADOL HYDROCHLORIDE
     Indication: PAIN
     Dosage: 200 MG (DAILY DOSE), ORAL
     Route: 048
     Dates: start: 200904
  12. LAROXYL [Suspect]
     Active Substance: AMITRIPTYLINE HYDROCHLORIDE
     Indication: PAIN
     Dosage: UNK
     Route: 048
     Dates: start: 200904

REACTIONS (7)
  - Somnolence [Unknown]
  - Blood pressure increased [Unknown]
  - Overdose [Recovering/Resolving]
  - Vomiting [Unknown]
  - Tachypnoea [Unknown]
  - Respiratory distress [Unknown]
  - Cyanosis [Unknown]

NARRATIVE: CASE EVENT DATE: 200904
